FAERS Safety Report 16019304 (Version 1)
Quarter: 2019Q1

REPORT INFORMATION
  Report Type: Spontaneous
  Country: DO (occurrence: DO)
  Receive Date: 20190228
  Receipt Date: 20190228
  Transmission Date: 20190418
  Serious: Yes (Death, Other)
  Sender: FDA-Public Use
  Company Number: DO-009507513-1902DOM010902

PATIENT
  Sex: Female

DRUGS (1)
  1. KEYTRUDA [Suspect]
     Active Substance: PEMBROLIZUMAB
     Indication: MALIGNANT MELANOMA
     Dosage: VIAL: 100MG/4ML, DOSE: 2 MG/ KG,EVERY 21 DAYS.
     Route: 042
     Dates: start: 20181010

REACTIONS (1)
  - Death [Fatal]
